FAERS Safety Report 5341930-6 (Version None)
Quarter: 2007Q2

REPORT INFORMATION
  Report Type: 
  Country: None (occurrence: None)
  Receive Date: 20070601
  Receipt Date: 20070522
  Transmission Date: 20071010
  Serious: Yes (Other)
  Sender: FDA-Public Use
  Company Number: US-ELI_LILLY_AND_COMPANY-US200701006338

PATIENT
  Age: 83 Year
  Sex: Female

DRUGS (1)
  1. FORTEO [Suspect]
     Dosage: UNK, UNK
     Dates: start: 20060101, end: 20070131

REACTIONS (9)
  - ANXIETY [None]
  - ASTHENIA [None]
  - EAR PAIN [None]
  - FATIGUE [None]
  - HYPERHIDROSIS [None]
  - HYPERSENSITIVITY [None]
  - HYPOACUSIS [None]
  - LOSS OF CONSCIOUSNESS [None]
  - PAIN IN JAW [None]
